FAERS Safety Report 7892707-9 (Version None)
Quarter: 2011Q4

REPORT INFORMATION
  Report Type: 
  Country: None (occurrence: None)
  Receive Date: 20111102
  Receipt Date: 20111025
  Transmission Date: 20120403
  Serious: Yes (Other)
  Sender: FDA-Public Use
  Company Number: DKLU1074228

PATIENT
  Age: 22 Year
  Sex: Male

DRUGS (1)
  1. NEMBUTAL [Suspect]
     Indication: CRANIOCEREBRAL INJURY

REACTIONS (3)
  - CEREBRAL SALT-WASTING SYNDROME [None]
  - SUBARACHNOID HAEMORRHAGE [None]
  - BRAIN OEDEMA [None]
